FAERS Safety Report 6510989-2 (Version None)
Quarter: 2009Q4

REPORT INFORMATION
  Report Type: 
  Country: None (occurrence: None)
  Receive Date: 20091222
  Receipt Date: 20090211
  Transmission Date: 20100525
  Serious: No
  Sender: FDA-Public Use
  Company Number: US-ASTRAZENECA-2009UW03997

PATIENT
  Age: 87 Year
  Sex: Female

DRUGS (5)
  1. CRESTOR [Suspect]
     Dosage: UNKNOWN
     Route: 048
  2. NORVASC [Concomitant]
  3. ATENOLOL [Concomitant]
  4. ASPIRIN [Concomitant]
  5. WATER PILL [Concomitant]
     Indication: DIURETIC THERAPY

REACTIONS (2)
  - OEDEMA PERIPHERAL [None]
  - PAIN [None]
